FAERS Safety Report 4461125-8 (Version None)
Quarter: 2004Q3

REPORT INFORMATION
  Report Type: 
  Country: None (occurrence: None)
  Receive Date: 20040923
  Receipt Date: 20040913
  Transmission Date: 20050211
  Serious: Yes (Death, Life-Threatening)
  Sender: FDA-Public Use
  Company Number: PK-2004-031366

PATIENT
  Sex: Male
  Weight: 60 kg

DRUGS (2)
  1. ULTRAVIST 370 [Suspect]
     Dosage: 150 ML
     Dates: start: 20040902, end: 20040902
  2. DIGOXIN [Concomitant]

REACTIONS (4)
  - CARDIAC ARREST [None]
  - CIRCULATORY COLLAPSE [None]
  - CONTRAST MEDIA REACTION [None]
  - HYPOTENSION [None]
